FAERS Safety Report 23405602 (Version 2)
Quarter: 2024Q2

REPORT INFORMATION
  Report Type: Report from Study
  Country: FR (occurrence: FR)
  Receive Date: 20240116
  Receipt Date: 20240403
  Transmission Date: 20240716
  Serious: Yes (Other)
  Sender: FDA-Public Use
  Company Number: FR-JNJFOC-20240123753

PATIENT
  Age: 52 Year
  Sex: Female

DRUGS (1)
  1. ESKETAMINE [Suspect]
     Active Substance: ESKETAMINE
     Indication: Product used for unknown indication
     Dosage: LAST DOSE WAS ADMINISTERED ON 16-JAN-2024 (PREVIOUSLY REPORTED AS 12-SEP-2023).
     Dates: start: 20230328, end: 20240227

REACTIONS (1)
  - Suicide attempt [Recovering/Resolving]

NARRATIVE: CASE EVENT DATE: 20230901
